FAERS Safety Report 12340943 (Version 3)
Quarter: 2016Q3

REPORT INFORMATION
  Report Type: Spontaneous
  Country: US (occurrence: US)
  Receive Date: 20160506
  Receipt Date: 20160705
  Transmission Date: 20161109
  Serious: No
  Sender: FDA-Public Use
  Company Number: US-PFIZER INC-2016221853

PATIENT
  Age: 53 Year
  Sex: Male

DRUGS (2)
  1. ADVIL [Suspect]
     Active Substance: IBUPROFEN
     Indication: ARTHRALGIA
     Dosage: 1 DF, UNK (200 MG PRIOR TO STRENUOUS DAY AT WORK)
     Dates: start: 201603, end: 2016
  2. ADVIL [Suspect]
     Active Substance: IBUPROFEN
     Indication: MYALGIA

REACTIONS (2)
  - Drug hypersensitivity [Recovered/Resolved]
  - Cough [Recovered/Resolved]
